FAERS Safety Report 14620953 (Version 1)
Quarter: 2018Q1

REPORT INFORMATION
  Report Type: Spontaneous
  Country: US (occurrence: US)
  Receive Date: 20180309
  Receipt Date: 20180309
  Transmission Date: 20180509
  Serious: No
  Sender: FDA-Public Use
  Company Number: US-TEIKOKU PHARMA USA-TPU2018-00040

PATIENT
  Sex: Male
  Weight: 89.89 kg

DRUGS (3)
  1. BENICAR [Concomitant]
     Active Substance: OLMESARTAN MEDOXOMIL
  2. LIDODERM [Suspect]
     Active Substance: LIDOCAINE
     Indication: SCIATICA
     Route: 061
  3. LIDODERM [Suspect]
     Active Substance: LIDOCAINE
     Indication: INTERVERTEBRAL DISC DISORDER

REACTIONS (2)
  - Drug ineffective for unapproved indication [Unknown]
  - Weight decreased [Unknown]
